FAERS Safety Report 4657842-7 (Version None)
Quarter: 2005Q2

REPORT INFORMATION
  Report Type: 
  Country: None (occurrence: None)
  Receive Date: 20050510
  Receipt Date: 20050304
  Transmission Date: 20051028
  Serious: Yes (Hospitalization, Disabling)
  Sender: FDA-Public Use
  Company Number: PHFR2005GB01106

PATIENT
  Age: 42 Year
  Sex: Male

DRUGS (3)
  1. LAMISIL [Suspect]
     Indication: NAIL TINEA
     Dosage: 250MG/DAY
     Route: 048
     Dates: start: 20050212, end: 20050228
  2. ATENOLOL [Concomitant]
     Indication: HYPERTENSION
     Dosage: 25 MG/DAY
     Route: 048
     Dates: start: 20000424
  3. AMLODIPINE [Concomitant]
     Indication: HYPERTENSION
     Dosage: 10 MG/DAY
     Route: 048
     Dates: start: 20000328

REACTIONS (5)
  - ABNORMAL BEHAVIOUR [None]
  - DELUSION [None]
  - DELUSIONAL DISORDER, PERSECUTORY TYPE [None]
  - PARANOIA [None]
  - PSYCHOTIC DISORDER [None]
